FAERS Safety Report 7761977-X (Version None)
Quarter: 2011Q3

REPORT INFORMATION
  Report Type: 
  Country: None (occurrence: None)
  Receive Date: 20110919
  Receipt Date: 20110919
  Transmission Date: 20111222
  Serious: No
  Sender: FDA-Public Use
  Company Number: None

PATIENT
  Sex: Female

DRUGS (1)
  1. REMICADE [Suspect]
     Indication: ENTERITIS
     Dosage: 400 MG WEEK D, 2 IV
     Route: 042
     Dates: start: 20110701, end: 20110701

REACTIONS (8)
  - HEADACHE [None]
  - PAROSMIA [None]
  - FOOD CRAVING [None]
  - FATIGUE [None]
  - NEUROPATHY PERIPHERAL [None]
  - IMPAIRED DRIVING ABILITY [None]
  - DYSGEUSIA [None]
  - DRUG INEFFECTIVE [None]
